FAERS Safety Report 7981436-9 (Version None)
Quarter: 2011Q4

REPORT INFORMATION
  Report Type: 
  Country: None (occurrence: None)
  Receive Date: 20111215
  Receipt Date: 20111205
  Transmission Date: 20120403
  Serious: Yes (Hospitalization, Disabling)
  Sender: FDA-Public Use
  Company Number: US-BAYER-2011-068042

PATIENT
  Age: 21 Year
  Sex: Female
  Weight: 58.957 kg

DRUGS (4)
  1. PREVACID [Concomitant]
     Route: 048
  2. YASMIN [Suspect]
     Indication: CONTRACEPTION
     Dosage: UNK
     Dates: start: 20061010, end: 20080412
  3. ASPIRIN [Concomitant]
     Dosage: 325 MG, TID
     Route: 048
  4. MOTRIN [Concomitant]
     Dosage: 88 MG, TID
     Route: 048

REACTIONS (8)
  - THROMBOPHLEBITIS SUPERFICIAL [None]
  - DEEP VEIN THROMBOSIS [None]
  - THROMBOSIS [None]
  - ANHEDONIA [None]
  - PAIN [None]
  - INJURY [None]
  - ANXIETY [None]
  - MENTAL DISORDER [None]
